FAERS Safety Report 10234272 (Version 2)
Quarter: 2014Q3

REPORT INFORMATION
  Report Type: Spontaneous
  Country: GB (occurrence: GB)
  Receive Date: 20140612
  Receipt Date: 20140707
  Transmission Date: 20150326
  Serious: Yes (Other)
  Sender: FDA-Public Use
  Company Number: GB-PFIZER INC-2014158376

PATIENT
  Age: 38 Year
  Sex: Male

DRUGS (4)
  1. CHAMPIX [Suspect]
     Active Substance: VARENICLINE TARTRATE
     Indication: SMOKING CESSATION THERAPY
     Dosage: 500 UG, ONCE A DAY FOR 3 DAYS
     Route: 048
     Dates: start: 20140516, end: 201405
  2. CHAMPIX [Suspect]
     Active Substance: VARENICLINE TARTRATE
     Dosage: 500 UG, 2X/DAY FOR 4 DAYS
     Route: 048
     Dates: start: 201405, end: 201405
  3. ASACOL [Concomitant]
     Active Substance: MESALAMINE
     Indication: IRRITABLE BOWEL SYNDROME
     Dosage: UNK
  4. CHAMPIX [Suspect]
     Active Substance: VARENICLINE TARTRATE
     Dosage: 1 MG, 2X/DAY
     Route: 048
     Dates: start: 201405, end: 20140527

REACTIONS (3)
  - Rectal haemorrhage [Recovered/Resolved]
  - Irritable bowel syndrome [Recovering/Resolving]
  - Haematochezia [Recovering/Resolving]

NARRATIVE: CASE EVENT DATE: 20140516
